FAERS Safety Report 12177149 (Version 1)
Quarter: 2016Q1

REPORT INFORMATION
  Report Type: Spontaneous
  Country: BR (occurrence: BR)
  Receive Date: 20160315
  Receipt Date: 20160315
  Transmission Date: 20160526
  Serious: Yes (Hospitalization)
  Sender: FDA-Public Use
  Company Number: BR-ABBVIE-16K-020-1578990-00

PATIENT
  Sex: Female
  Weight: 75 kg

DRUGS (5)
  1. KETOPROFEN. [Concomitant]
     Active Substance: KETOPROFEN
     Indication: RHEUMATIC DISORDER
     Route: 048
     Dates: start: 2013
  2. CODEIN [Concomitant]
     Active Substance: CODEINE
     Indication: RHEUMATIC DISORDER
     Route: 048
     Dates: start: 2013
  3. TAMENTROZOL [Concomitant]
     Indication: PRODUCT USED FOR UNKNOWN INDICATION
     Route: 048
     Dates: start: 2013
  4. HUMIRA [Suspect]
     Active Substance: ADALIMUMAB
     Indication: RHEUMATOID ARTHRITIS
     Route: 058
     Dates: start: 2013
  5. METHOTREXATE [Concomitant]
     Active Substance: METHOTREXATE
     Indication: RHEUMATIC DISORDER
     Route: 048
     Dates: start: 2013

REACTIONS (3)
  - Diabetes mellitus [Recovered/Resolved]
  - Migraine [Not Recovered/Not Resolved]
  - Intervertebral disc protrusion [Recovering/Resolving]

NARRATIVE: CASE EVENT DATE: 2013
